FAERS Safety Report 25980776 (Version 1)
Quarter: 2025Q4

REPORT INFORMATION
  Report Type: Spontaneous
  Country: US (occurrence: US)
  Receive Date: 20251030
  Receipt Date: 20251030
  Transmission Date: 20260117
  Serious: No
  Sender: PFIZER
  Company Number: US-PFIZER INC-202500211756

PATIENT
  Sex: Male

DRUGS (2)
  1. ENCORAFENIB [Suspect]
     Active Substance: ENCORAFENIB
     Dosage: UNK (FULL DOSE FOR ABOUT 1.5 WEEKS)
  2. BINIMETINIB [Suspect]
     Active Substance: BINIMETINIB
     Dosage: UNK (FULL DOSE FOR ABOUT 1.5 WEEKS)

REACTIONS (2)
  - Pyrexia [Recovered/Resolved]
  - Myalgia [Recovered/Resolved]
